FAERS Safety Report 13466265 (Version 1)
Quarter: 2017Q2

REPORT INFORMATION
  Report Type: Spontaneous
  Country: US (occurrence: US)
  Receive Date: 20170421
  Receipt Date: 20170421
  Transmission Date: 20170830
  Serious: Yes (Other)
  Sender: FDA-Public Use
  Company Number: US-009507513-1704USA005524

PATIENT
  Age: 81 Year
  Sex: Male

DRUGS (2)
  1. SINEMET [Suspect]
     Active Substance: CARBIDOPA\LEVODOPA
     Dosage: UNK
     Route: 048
     Dates: end: 20170320
  2. NORTHERA [Concomitant]
     Active Substance: DROXIDOPA
     Dosage: UNK

REACTIONS (4)
  - Joint stiffness [Unknown]
  - Tremor [Unknown]
  - Altered state of consciousness [Unknown]
  - Blood pressure decreased [Unknown]

NARRATIVE: CASE EVENT DATE: 20170320
